FAERS Safety Report 7555449-5 (Version None)
Quarter: 2011Q2

REPORT INFORMATION
  Report Type: 
  Country: None (occurrence: None)
  Receive Date: 20110617
  Receipt Date: 20110615
  Transmission Date: 20111010
  Serious: Yes (Death, Hospitalization, Other)
  Sender: FDA-Public Use
  Company Number: US-B.I. PHARMACEUTICALS,INC./RIDGEFIELD-2007-BP-25602BP

PATIENT
  Sex: Male

DRUGS (4)
  1. LAMISIL [Suspect]
     Indication: LOCALISED INFECTION
     Route: 048
  2. SINEMET [Concomitant]
     Indication: PARKINSON'S DISEASE
     Route: 048
  3. MIRAPEX [Suspect]
     Indication: PARKINSON'S DISEASE
     Route: 048
     Dates: start: 20061016, end: 20071120
  4. ACIPHEX [Concomitant]
     Indication: GASTRIC DISORDER
     Route: 048

REACTIONS (18)
  - DEPRESSION [None]
  - NEGATIVE THOUGHTS [None]
  - CRYING [None]
  - EMOTIONAL DISTRESS [None]
  - DRUG EFFECT DECREASED [None]
  - PATHOLOGICAL GAMBLING [None]
  - COMPULSIVE SHOPPING [None]
  - MANIA [None]
  - HALLUCINATION [None]
  - PSYCHOTIC DISORDER [None]
  - PARANOIA [None]
  - STUBBORNNESS [None]
  - HYPERSEXUALITY [None]
  - SUICIDAL IDEATION [None]
  - ABNORMAL BEHAVIOUR [None]
  - ANXIETY [None]
  - COMPLETED SUICIDE [None]
  - CONFUSIONAL STATE [None]
